FAERS Safety Report 14061542 (Version 1)
Quarter: 2017Q4

REPORT INFORMATION
  Report Type: Spontaneous
  Country: ES (occurrence: ES)
  Receive Date: 20171009
  Receipt Date: 20171009
  Transmission Date: 20180321
  Serious: Yes (Death, Other)
  Sender: FDA-Public Use
  Company Number: ES-ACCORD-059602

PATIENT
  Age: 75 Year
  Sex: Male

DRUGS (4)
  1. DOCETAXEL. [Suspect]
     Active Substance: DOCETAXEL
     Indication: ADENOCARCINOMA GASTRIC
     Dosage: I.V. EVERY 21 DAYS (5 CYCLES)
     Route: 042
  2. TRASTUZUMAB. [Concomitant]
     Active Substance: TRASTUZUMAB
     Indication: ADENOCARCINOMA GASTRIC
     Dosage: 8 MG/KG WEIGHT THE FIRST TIME AND THEREAFTER AT DOSES OF 6 MG/KG WEIGHT I.V. EVERY 21 DAYS
     Route: 042
     Dates: start: 201106
  3. OXALIPLATIN. [Suspect]
     Active Substance: OXALIPLATIN
     Indication: ADENOCARCINOMA GASTRIC
     Dosage: EVERY 21 DAYS, RECEIVED TOTAL 11 CYCLES
     Route: 042
  4. CAPECITABINE. [Suspect]
     Active Substance: CAPECITABINE
     Indication: ADENOCARCINOMA GASTRIC
     Dosage: P.O. EVERY 12 H ON DAYS 1-14 WITHIN 21-DAY CYCLES
     Route: 048
     Dates: start: 201106

REACTIONS (5)
  - Asthenia [Unknown]
  - Creatinine renal clearance decreased [Unknown]
  - Neuropathy peripheral [Unknown]
  - Anaemia [Unknown]
  - Off label use [Unknown]
